FAERS Safety Report 24201298 (Version 2)
Quarter: 2024Q4

REPORT INFORMATION
  Report Type: Spontaneous
  Country: NL (occurrence: NL)
  Receive Date: 20240812
  Receipt Date: 20241102
  Transmission Date: 20250114
  Serious: Yes (Other)
  Sender: DENTSPLY
  Company Number: NL-DENTSPLY-2024SCDP000231

PATIENT
  Age: 65 Year
  Sex: Male

DRUGS (1)
  1. MEPIVACAINE [Suspect]
     Active Substance: MEPIVACAINE HYDROCHLORIDE
     Indication: Nerve block
     Dosage: 32 MILLILITER OF MEPIVACAINE 1.5%

REACTIONS (1)
  - Respiratory distress [Recovering/Resolving]
